FAERS Safety Report 24684197 (Version 1)
Quarter: 2024Q4

REPORT INFORMATION
  Report Type: Spontaneous
  Country: US (occurrence: US)
  Receive Date: 20241202
  Receipt Date: 20241202
  Transmission Date: 20250115
  Serious: No
  Sender: AUCTA PHARMACEUTICALS
  Company Number: US-AUCTA-000016

PATIENT
  Age: 6 Year
  Sex: Female

DRUGS (1)
  1. OXCARBAZEPINE [Suspect]
     Active Substance: OXCARBAZEPINE
     Indication: Seizure
     Dosage: STRENGTH: 300 MG/5 ML (60 MG/ML)
     Route: 048
     Dates: start: 20240923

REACTIONS (2)
  - Drug ineffective [Unknown]
  - Product taste abnormal [Unknown]

NARRATIVE: CASE EVENT DATE: 20240923
